FAERS Safety Report 8272108-4 (Version None)
Quarter: 2012Q1

REPORT INFORMATION
  Report Type: 
  Country: None (occurrence: None)
  Receive Date: 20120312
  Receipt Date: 20120103
  Transmission Date: 20120608
  Serious: No
  Sender: FDA-Public Use
  Company Number: 2012SP000685

PATIENT
  Age: 49 Year
  Sex: Female

DRUGS (6)
  1. LAMICTAL [Concomitant]
  2. SAPHRIS [Suspect]
     Indication: BIPOLAR DISORDER
     Dosage: 5 MG, BID, HS, SL
     Route: 060
     Dates: start: 20111201
  3. SAPHRIS [Suspect]
     Indication: BIPOLAR DISORDER
     Dosage: 5 MG, BID, HS, SL
     Route: 060
     Dates: end: 20120103
  4. PROZAC [Concomitant]
  5. GABAPENTIN [Concomitant]
  6. ADDERALL 10 [Concomitant]

REACTIONS (5)
  - HYPERHIDROSIS [None]
  - WEIGHT INCREASED [None]
  - INAPPROPRIATE SCHEDULE OF DRUG ADMINISTRATION [None]
  - HEADACHE [None]
  - HYPERPHAGIA [None]
